FAERS Safety Report 10253852 (Version 2)
Quarter: 2014Q3

REPORT INFORMATION
  Report Type: Spontaneous
  Country: US (occurrence: US)
  Receive Date: 20140623
  Receipt Date: 20140812
  Transmission Date: 20150326
  Serious: Yes (Other)
  Sender: FDA-Public Use
  Company Number: US-TEVA-489348USA

PATIENT
  Age: 61 Year
  Sex: Male

DRUGS (9)
  1. CITALOPRAM [Concomitant]
     Active Substance: CITALOPRAM HYDROBROMIDE
  2. COPAXONE [Suspect]
     Active Substance: GLATIRAMER ACETATE
     Indication: MULTIPLE SCLEROSIS
     Dosage: 20 MILLIGRAM DAILY;
     Route: 058
     Dates: start: 20120718, end: 201305
  3. TRAZODONE [Concomitant]
     Active Substance: TRAZODONE HYDROCHLORIDE
     Dates: end: 20130424
  4. TECFIDERA [Concomitant]
     Active Substance: DIMETHYL FUMARATE
  5. LORAZEPAM. [Concomitant]
     Active Substance: LORAZEPAM
  6. HYOSCYAMINE [Concomitant]
     Active Substance: HYOSCYAMINE
     Route: 060
  7. GABAPENTIN. [Concomitant]
     Active Substance: GABAPENTIN
     Dates: end: 20120917
  8. ONDANSETRON [Concomitant]
     Active Substance: ONDANSETRON
  9. BACLOFEN. [Concomitant]
     Active Substance: BACLOFEN

REACTIONS (2)
  - Asthenia [Unknown]
  - Fall [Unknown]

NARRATIVE: CASE EVENT DATE: 20130530
